FAERS Safety Report 10902809 (Version 1)
Quarter: 2015Q1

REPORT INFORMATION
  Report Type: Spontaneous
  Country: US (occurrence: US)
  Receive Date: 20150310
  Receipt Date: 20150310
  Transmission Date: 20150721
  Serious: No
  Sender: FDA-Public Use
  Company Number: US-CELGENEUS-USA-2015022723

PATIENT
  Age: 80 Year
  Sex: Female
  Weight: 55.39 kg

DRUGS (4)
  1. REVLIMID [Suspect]
     Active Substance: LENALIDOMIDE
     Dosage: 25 MG - 15 MG
     Route: 048
     Dates: start: 201201
  2. REVLIMID [Suspect]
     Active Substance: LENALIDOMIDE
     Indication: PLASMA CELL MYELOMA
     Route: 048
     Dates: start: 20111229
  3. REVLIMID [Suspect]
     Active Substance: LENALIDOMIDE
     Dosage: 10 - 5MG
     Route: 048
     Dates: start: 201208
  4. REVLIMID [Suspect]
     Active Substance: LENALIDOMIDE
     Route: 048
     Dates: start: 201308

REACTIONS (1)
  - Anorectal discomfort [Unknown]

NARRATIVE: CASE EVENT DATE: 20150211
